FAERS Safety Report 9322019 (Version 1)
Quarter: 2013Q2

REPORT INFORMATION
  Report Type: Spontaneous
  Country: US (occurrence: US)
  Receive Date: 20130531
  Receipt Date: 20130531
  Transmission Date: 20140414
  Serious: Yes (Disabling, Other)
  Sender: FDA-Public Use
  Company Number: US-JNJFOC-20110802002

PATIENT
  Sex: Female

DRUGS (1)
  1. LEVAQUIN [Suspect]
     Indication: BACTERIAL INFECTION
     Dosage: FOR 7 DAYS.
     Route: 048
     Dates: start: 20091217

REACTIONS (23)
  - Diabetes mellitus inadequate control [Unknown]
  - Rotator cuff syndrome [Unknown]
  - Tendon rupture [Unknown]
  - Myoclonus [Unknown]
  - Bladder spasm [Unknown]
  - Paralysis [Unknown]
  - Visual impairment [Unknown]
  - Constipation [Unknown]
  - Urinary tract infection [Unknown]
  - Insomnia [Unknown]
  - Hyperhidrosis [Unknown]
  - Tendon disorder [Unknown]
  - Tendon disorder [Unknown]
  - Burning sensation [Unknown]
  - Oedema peripheral [Unknown]
  - Asthenia [Unknown]
  - Food intolerance [Unknown]
  - Urinary incontinence [Unknown]
  - Dyslexia [Unknown]
  - Alopecia [Unknown]
  - Dehydration [Unknown]
  - Anal haemorrhage [Unknown]
  - Tooth disorder [Unknown]
